FAERS Safety Report 6419133-3 (Version None)
Quarter: 2009Q4

REPORT INFORMATION
  Report Type: 
  Country: None (occurrence: None)
  Receive Date: 20091029
  Receipt Date: 20091021
  Transmission Date: 20100525
  Serious: Yes (Death)
  Sender: FDA-Public Use
  Company Number: US-ROCHE-662607

PATIENT
  Sex: Female
  Weight: 72.1 kg

DRUGS (1)
  1. CAPECITABINE [Suspect]
     Route: 048
     Dates: start: 20090422, end: 20091010

REACTIONS (1)
  - ROAD TRAFFIC ACCIDENT [None]
